FAERS Safety Report 7785022-5 (Version None)
Quarter: 2011Q3

REPORT INFORMATION
  Report Type: 
  Country: None (occurrence: None)
  Receive Date: 20110929
  Receipt Date: 20110920
  Transmission Date: 20111222
  Serious: Yes (Other)
  Sender: FDA-Public Use
  Company Number: JP-BRISTOL-MYERS SQUIBB COMPANY-15462245

PATIENT
  Age: 31 Year
  Sex: Female
  Weight: 59 kg

DRUGS (3)
  1. RITODRINE HYDROCHLORIDE [Concomitant]
     Dates: start: 20081122, end: 20090112
  2. ALOSENN [Concomitant]
     Dates: start: 20081202
  3. ABILIFY [Suspect]
     Dosage: 6 MG:08DEC08-28DEC08.3MG29DEC08-UNK
     Route: 048
     Dates: start: 20081208

REACTIONS (3)
  - PREMATURE LABOUR [None]
  - LIVE BIRTH [None]
  - PREGNANCY [None]
